FAERS Safety Report 7097303-1 (Version None)
Quarter: 2010Q4

REPORT INFORMATION
  Report Type: 
  Country: None (occurrence: None)
  Receive Date: 20101111
  Receipt Date: 20100208
  Transmission Date: 20110411
  Serious: No
  Sender: FDA-Public Use
  Company Number: US-KINGPHARMUSA00001-K201000164

PATIENT
  Sex: Male
  Weight: 99.773 kg

DRUGS (5)
  1. SKELAXIN [Suspect]
     Indication: MUSCLE DISORDER
     Dosage: 800 MG, QID
     Route: 048
     Dates: start: 20060101, end: 20100101
  2. ARTHROTEC [Concomitant]
     Indication: ARTHRITIS
  3. LOTREL [Concomitant]
     Indication: HYPERTENSION
  4. TRAZODONE [Concomitant]
     Indication: SLEEP DISORDER
  5. OXYCONTIN [Concomitant]
     Indication: ARTHRALGIA
     Dosage: 4 TABS DAILY

REACTIONS (3)
  - FLATULENCE [None]
  - GASTROINTESTINAL DISORDER [None]
  - INSOMNIA [None]
